FAERS Safety Report 6742190-1 (Version None)
Quarter: 2010Q2

REPORT INFORMATION
  Report Type: 
  Country: None (occurrence: None)
  Receive Date: 20100526
  Receipt Date: 20100518
  Transmission Date: 20101027
  Serious: Yes (Other)
  Sender: FDA-Public Use
  Company Number: JP-ROCHE-704027

PATIENT
  Sex: Female
  Weight: 51 kg

DRUGS (6)
  1. ACTEMRA [Suspect]
     Indication: RHEUMATOID ARTHRITIS
     Route: 041
     Dates: start: 20091209, end: 20100428
  2. AZULFIDINE [Concomitant]
     Dosage: DOSE FORM:ENTERIC COATING
     Route: 048
     Dates: start: 20091013, end: 20100218
  3. CELCOX [Concomitant]
     Dosage: REPORTED:CELECOX
     Route: 048
     Dates: start: 20091013, end: 20100218
  4. MUCOSTA [Concomitant]
     Dosage: DOSE FORM:PERORAL AGENT
     Route: 048
     Dates: start: 20091013, end: 20100218
  5. RHEUMATREX [Concomitant]
     Route: 048
     Dates: start: 20091013, end: 20100105
  6. RHEUMATREX [Concomitant]
     Route: 048
     Dates: start: 20100106, end: 20100305

REACTIONS (1)
  - OVARIAN CANCER RECURRENT [None]
